FAERS Safety Report 6907861-2 (Version None)
Quarter: 2010Q3

REPORT INFORMATION
  Report Type: 
  Country: None (occurrence: None)
  Receive Date: 20100716
  Receipt Date: 20100419
  Transmission Date: 20110219
  Serious: Yes (Other)
  Sender: FDA-Public Use
  Company Number: 2010049138

PATIENT
  Sex: Female

DRUGS (2)
  1. CELEBREX [Suspect]
     Indication: OEDEMA PERIPHERAL
  2. CELEBREX [Suspect]
     Indication: PAIN IN EXTREMITY

REACTIONS (3)
  - ARTHRALGIA [None]
  - FEELING HOT [None]
  - SINUSITIS [None]
